FAERS Safety Report 6669243-0 (Version None)
Quarter: 2010Q2

REPORT INFORMATION
  Report Type: 
  Country: None (occurrence: None)
  Receive Date: 20100406
  Receipt Date: 20100401
  Transmission Date: 20101027
  Serious: Yes (Hospitalization)
  Sender: FDA-Public Use
  Company Number: KR-BRISTOL-MYERS SQUIBB COMPANY-14991608

PATIENT
  Age: 66 Year
  Sex: Female
  Weight: 47 kg

DRUGS (10)
  1. CISPLATIN [Suspect]
     Indication: NON-SMALL CELL LUNG CANCER
     Dosage: LAST DOSE: 27JAN2010 DOSE REDUCED TO 56.25 MG/M2.
     Route: 042
     Dates: start: 20100127
  2. ALIMTA [Suspect]
     Indication: NON-SMALL CELL LUNG CANCER
     Dosage: LAST DOSE: 27JAN2010 DOSE REDUCED TO 375 MG/M2.
     Route: 042
     Dates: start: 20100127
  3. FOLIC ACID [Concomitant]
     Indication: PROPHYLAXIS
     Dates: start: 20100119, end: 20100131
  4. VITAMIN B-12 [Concomitant]
     Indication: PROPHYLAXIS
     Dates: start: 20100119, end: 20100119
  5. DEXAMETHASONE [Concomitant]
     Indication: PROPHYLAXIS
     Dates: start: 20100125, end: 20100128
  6. ZIPEPROL [Concomitant]
     Indication: COUGH
     Dates: start: 20100119, end: 20100131
  7. RANITIDINE [Concomitant]
     Indication: PROPHYLAXIS
     Dates: start: 20100125, end: 20100128
  8. PALONOSETRON [Concomitant]
     Indication: PROPHYLAXIS
     Dates: start: 20100127, end: 20100127
  9. APREPITANT [Concomitant]
     Indication: PROPHYLAXIS
     Dates: start: 20100127, end: 20100129
  10. FUROSEMIDE [Concomitant]
     Indication: PROPHYLAXIS
     Dates: start: 20100127, end: 20100127

REACTIONS (1)
  - ILEUS [None]
